FAERS Safety Report 26077952 (Version 1)
Quarter: 2025Q4

REPORT INFORMATION
  Report Type: Spontaneous
  Country: US (occurrence: US)
  Receive Date: 20251122
  Receipt Date: 20251122
  Transmission Date: 20260117
  Serious: No
  Sender: MDD OPERATIONS
  Company Number: US-MDD US Operations-MDD202509-003863

PATIENT
  Age: 45 Year
  Sex: Female

DRUGS (3)
  1. ONAPGO [Suspect]
     Active Substance: APOMORPHINE HYDROCHLORIDE
     Indication: Parkinson^s disease
     Dosage: 1 MG PER HOUR FOR 11 HOURS
     Dates: start: 20250918
  2. ONAPGO [Suspect]
     Active Substance: APOMORPHINE HYDROCHLORIDE
     Indication: Dyskinesia
     Dosage: 1.5 MG PER HOUR
     Dates: start: 20250919
  3. ONAPGO [Suspect]
     Active Substance: APOMORPHINE HYDROCHLORIDE
     Indication: On and off phenomenon
     Dosage: 16 HOURS OR LESS EACH DAY
     Route: 058
     Dates: start: 202509

REACTIONS (8)
  - Balance disorder [Unknown]
  - Impaired driving ability [Unknown]
  - Neck pain [Unknown]
  - Musculoskeletal stiffness [Unknown]
  - Dyskinesia [Unknown]
  - Somnolence [Unknown]
  - Injection site mass [Unknown]
  - Injection site irritation [Unknown]

NARRATIVE: CASE EVENT DATE: 20250919
